FAERS Safety Report 4924638-8 (Version None)
Quarter: 2006Q1

REPORT INFORMATION
  Report Type: 
  Country: None (occurrence: None)
  Receive Date: 20060222
  Receipt Date: 20060213
  Transmission Date: 20060701
  Serious: Yes (Disabling)
  Sender: FDA-Public Use
  Company Number: S06-FRA-00786-01

PATIENT
  Sex: Female

DRUGS (2)
  1. MEMANTINE HCL [Suspect]
     Indication: DEMENTIA ALZHEIMER'S TYPE
  2. ARICEPT [Concomitant]

REACTIONS (3)
  - INSOMNIA [None]
  - PRURITUS [None]
  - ROSACEA [None]
